FAERS Safety Report 9616067 (Version 1)
Quarter: 2013Q4

REPORT INFORMATION
  Report Type: Spontaneous
  Country: US (occurrence: None)
  Receive Date: 20131010
  Receipt Date: 20131010
  Transmission Date: 20140711
  Serious: No
  Sender: FDA-Public Use
  Company Number: None

PATIENT
  Age: 43 Year
  Sex: Female

DRUGS (3)
  1. KENALOG [Suspect]
     Dosage: 1 DOSE,  GLUTEUS MAXIMUS
     Dates: start: 20130228, end: 20130401
  2. WELLBUTRIN [Concomitant]
  3. XOPENEX 45 [Concomitant]

REACTIONS (6)
  - Injection site reaction [None]
  - Injection site atrophy [None]
  - Back pain [None]
  - Pain in extremity [None]
  - Muscle atrophy [None]
  - Nerve injury [None]
